FAERS Safety Report 6390960-4 (Version None)
Quarter: 2009Q4

REPORT INFORMATION
  Report Type: 
  Country: None (occurrence: None)
  Receive Date: 20091001
  Receipt Date: 20090806
  Transmission Date: 20100525
  Serious: Yes (Other)
  Sender: FDA-Public Use
  Company Number: 199984USA

PATIENT
  Sex: Female

DRUGS (1)
  1. TOPIRAMATE [Suspect]
     Dosage: 12.5 MG (12.5 MG,1 IN 1 D),ORAL
     Route: 048

REACTIONS (2)
  - ANGLE CLOSURE GLAUCOMA [None]
  - MYOPIA [None]
